FAERS Safety Report 9299329 (Version 1)
Quarter: 2013Q2

REPORT INFORMATION
  Report Type: Spontaneous
  Country: IT (occurrence: IT)
  Receive Date: 20130520
  Receipt Date: 20130520
  Transmission Date: 20140414
  Serious: Yes (Other)
  Sender: FDA-Public Use
  Company Number: IT-009507513-1305ITA005392

PATIENT
  Age: 45 Year
  Sex: Female

DRUGS (3)
  1. PROSCAR 5 MG COMPRESSE RIVESTITE CON FILM [Suspect]
     Dosage: 5 MG, QD
     Route: 048
  2. CARBAMAZEPINE [Concomitant]
     Indication: TEMPORAL LOBE EPILEPSY
     Dosage: INITIALLY GIVEN UP TO 800 MG /DAY, THEN DECREASED TO 600 MG, QD
  3. LAMOTRIGINE [Concomitant]
     Indication: TEMPORAL LOBE EPILEPSY
     Dosage: UP TO 300 MG, QD. GRADUALLY REDUCED AND SUBSEQUENTLY STOPPED

REACTIONS (1)
  - Temporal lobe epilepsy [Recovered/Resolved]
